FAERS Safety Report 10050742 (Version 1)
Quarter: 2014Q2

REPORT INFORMATION
  Report Type: Spontaneous
  Country: US (occurrence: US)
  Receive Date: 20140401
  Receipt Date: 20140401
  Transmission Date: 20141212
  Serious: No
  Sender: FDA-Public Use
  Company Number: US-ASTRAZENECA-2013SE71785

PATIENT
  Age: 63 Year
  Sex: Female
  Weight: 63.5 kg

DRUGS (2)
  1. NEXIUM [Suspect]
     Indication: GASTROOESOPHAGEAL REFLUX DISEASE
     Route: 048
     Dates: start: 20130909
  2. HYOSCYAMINE SULFATE [Concomitant]
     Indication: ABDOMINAL DISCOMFORT
     Route: 048
     Dates: start: 20130909

REACTIONS (10)
  - Abdominal distension [Unknown]
  - Abdominal discomfort [Unknown]
  - Headache [Unknown]
  - Nausea [Unknown]
  - Diarrhoea [Unknown]
  - Abdominal pain [Unknown]
  - Dry mouth [Unknown]
  - Flatulence [Unknown]
  - Constipation [Unknown]
  - Somnolence [Unknown]
